FAERS Safety Report 6729352-4 (Version None)
Quarter: 2010Q2

REPORT INFORMATION
  Report Type: 
  Country: None (occurrence: None)
  Receive Date: 20100517
  Receipt Date: 20100510
  Transmission Date: 20101027
  Serious: No
  Sender: FDA-Public Use
  Company Number: US-ABBOTT-10P-163-0643412-00

PATIENT
  Sex: Female

DRUGS (10)
  1. SIMCOR [Suspect]
     Indication: BLOOD CHOLESTEROL ABNORMAL
     Dosage: AT BEDTIME
  2. SIMCOR [Suspect]
     Indication: LOW DENSITY LIPOPROTEIN ABNORMAL
  3. SIMCOR [Suspect]
     Indication: BLOOD TRIGLYCERIDES
  4. SIMCOR [Suspect]
     Indication: HIGH DENSITY LIPOPROTEIN ABNORMAL
  5. METFORMIN HYDROCHLORIDE [Concomitant]
     Indication: DRUG USE FOR UNKNOWN INDICATION
  6. ASPIRIN [Concomitant]
     Indication: DRUG USE FOR UNKNOWN INDICATION
  7. BENZEPRIL [Concomitant]
     Indication: DRUG USE FOR UNKNOWN INDICATION
  8. NEXIUM [Concomitant]
     Indication: DRUG USE FOR UNKNOWN INDICATION
  9. CALCIUM [Concomitant]
     Indication: DRUG USE FOR UNKNOWN INDICATION
  10. FISH OIL [Concomitant]
     Indication: DRUG USE FOR UNKNOWN INDICATION

REACTIONS (6)
  - CHILLS [None]
  - DIARRHOEA [None]
  - HYPERHIDROSIS [None]
  - MALAISE [None]
  - NAUSEA [None]
  - VOMITING [None]
